FAERS Safety Report 9002696 (Version 1)
Quarter: 2013Q1

REPORT INFORMATION
  Report Type: Spontaneous
  Country: US (occurrence: US)
  Receive Date: 20130107
  Receipt Date: 20130107
  Transmission Date: 20140127
  Serious: No
  Sender: FDA-Public Use
  Company Number: US-GLAXOSMITHKLINE-A0976014A

PATIENT
  Age: 50 Year
  Sex: Female
  Weight: 66.74 kg

DRUGS (8)
  1. BENLYSTA [Suspect]
     Indication: SYSTEMIC LUPUS ERYTHEMATOSUS
     Route: 042
     Dates: start: 20120410
  2. PLAQUENIL [Concomitant]
     Dosage: 200MG PER DAY
  3. COUMADIN [Concomitant]
  4. METHYLPREDNISOLONE [Concomitant]
  5. TOPAMAX [Concomitant]
  6. PERCOCET [Concomitant]
  7. PRILOSEC [Concomitant]
  8. LEVOFLOXACIN [Concomitant]
     Dosage: 500MG PER DAY
     Dates: start: 20120419

REACTIONS (5)
  - Productive cough [Not Recovered/Not Resolved]
  - Arthralgia [Not Recovered/Not Resolved]
  - Pain [Not Recovered/Not Resolved]
  - Pyrexia [Not Recovered/Not Resolved]
  - Respiratory tract infection [Recovered/Resolved]
